FAERS Safety Report 19150296 (Version 2)
Quarter: 2021Q2

REPORT INFORMATION
  Report Type: Spontaneous
  Country: US (occurrence: US)
  Receive Date: 20210418
  Receipt Date: 20210525
  Transmission Date: 20210717
  Serious: No
  Sender: FDA-Public Use
  Company Number: US-ASTRAZENECA-2021A208863

PATIENT
  Age: 1067 Month
  Sex: Male
  Weight: 73.5 kg

DRUGS (3)
  1. ALBUTEROL. [Concomitant]
     Active Substance: ALBUTEROL
  2. BUDESONIDE AND FORMOTEROL [Suspect]
     Active Substance: BUDESONIDE\FORMOTEROL
     Indication: ASTHMA
     Dosage: 80/4.5 MCG, TWO PUFFS, TWO TIMES A DAY
     Route: 055
     Dates: start: 201802
  3. DULERA [Concomitant]
     Active Substance: FORMOTEROL FUMARATE DIHYDRATE\MOMETASONE FUROATE

REACTIONS (5)
  - Incorrect dose administered by device [Unknown]
  - Device malfunction [Unknown]
  - Wrong technique in device usage process [Unknown]
  - Intentional product misuse [Unknown]
  - Candida infection [Recovering/Resolving]

NARRATIVE: CASE EVENT DATE: 202103
